FAERS Safety Report 8326191-8 (Version None)
Quarter: 2012Q2

REPORT INFORMATION
  Report Type: 
  Country: None (occurrence: None)
  Receive Date: 20120427
  Receipt Date: 20120412
  Transmission Date: 20120825
  Serious: Yes (Hospitalization)
  Sender: FDA-Public Use
  Company Number: 2012MA005023

PATIENT
  Age: 52 Year
  Sex: Female

DRUGS (2)
  1. FLUOROURACIL [Concomitant]
  2. GEMCITABINE HYDROCHLORIDE [Suspect]
     Indication: ADENOCARCINOMA PANCREAS
     Dosage: 750 MG/M**2;QW;IV
     Route: 042

REACTIONS (4)
  - RECALL PHENOMENON [None]
  - MUSCLE OEDEMA [None]
  - ERYTHEMA [None]
  - ABDOMINAL PAIN [None]
